FAERS Safety Report 9739047 (Version 2)
Quarter: 2013Q4

REPORT INFORMATION
  Report Type: Report from Study
  Country: NL (occurrence: NL)
  Receive Date: 20131209
  Receipt Date: 20131230
  Transmission Date: 20140711
  Serious: Yes (Hospitalization)
  Sender: FDA-Public Use
  Company Number: NL-MPIJNJ-2013JNJ001227

PATIENT
  Sex: 0

DRUGS (4)
  1. VELCADE [Suspect]
     Indication: PLASMA CELL MYELOMA
     Dosage: 2.5 MG, UNK
     Route: 058
     Dates: start: 20130809, end: 20131021
  2. GRANULOCYTE COLONY-STIMULATING FACTOR NOS [Suspect]
     Indication: PLASMA CELL MYELOMA
     Dosage: 300 ?G, UNK
     Route: 058
     Dates: start: 20131112, end: 20131118
  3. CYCLOPHOSPHAMIDE [Suspect]
     Indication: PLASMA CELL MYELOMA
     Dosage: 3800 MG, UNK
     Route: 042
  4. DEXAMETHASONE [Suspect]
     Indication: PLASMA CELL MYELOMA
     Dosage: 40 MG, UNK
     Route: 048
     Dates: start: 20130809, end: 20131021

REACTIONS (2)
  - Muscular weakness [Recovered/Resolved with Sequelae]
  - Paraesthesia [None]
